FAERS Safety Report 5213778-4 (Version None)
Quarter: 2007Q1

REPORT INFORMATION
  Report Type: 
  Country: None (occurrence: None)
  Receive Date: 20070119
  Receipt Date: 20070111
  Transmission Date: 20070707
  Serious: Yes (Hospitalization, Other)
  Sender: FDA-Public Use
  Company Number: JP-PFIZER INC-2006132804

PATIENT
  Sex: Female

DRUGS (10)
  1. ZOLOFT [Suspect]
     Indication: DEPRESSIVE SYMPTOM
     Dosage: DAILY DOSE:50MG
     Route: 048
  2. LITHIUM CARBONATE [Concomitant]
     Route: 048
  3. BROTIZOLAM [Concomitant]
     Route: 048
     Dates: start: 20061027
  4. SHINLUCK [Concomitant]
     Route: 048
     Dates: start: 20060822
  5. TOLEDOMIN [Concomitant]
     Route: 048
     Dates: start: 20060822, end: 20061026
  6. PIRENZEPINE [Concomitant]
     Route: 048
     Dates: start: 20060822, end: 20061026
  7. TETRAMIDE [Concomitant]
     Route: 048
     Dates: start: 20060822, end: 20061026
  8. FLUNITRAZEPAM [Concomitant]
     Route: 048
     Dates: start: 20060822, end: 20061026
  9. BROMOCRIPTINE MESYLATE [Concomitant]
     Route: 048
  10. LORAZEPAM [Concomitant]
     Route: 048

REACTIONS (5)
  - ACTIVITIES OF DAILY LIVING IMPAIRED [None]
  - BRADYCARDIA [None]
  - LOSS OF CONSCIOUSNESS [None]
  - MALAISE [None]
  - VOMITING [None]
